FAERS Safety Report 9805402 (Version 1)
Quarter: 2014Q1

REPORT INFORMATION
  Report Type: Spontaneous
  Country: US (occurrence: US)
  Receive Date: 20140109
  Receipt Date: 20140109
  Transmission Date: 20141002
  Serious: No
  Sender: FDA-Public Use
  Company Number: US-PFIZER INC-2014004105

PATIENT
  Age: 58 Year
  Sex: Male
  Weight: 113 kg

DRUGS (1)
  1. BICILLIN L-A [Suspect]
     Dosage: UNK

REACTIONS (2)
  - Injection site pain [Unknown]
  - Needle issue [Unknown]
